FAERS Safety Report 5661635-1 (Version None)
Quarter: 2008Q1

REPORT INFORMATION
  Report Type: 
  Country: None (occurrence: None)
  Receive Date: 20080312
  Receipt Date: 20080303
  Transmission Date: 20080703
  Serious: Yes (Hospitalization)
  Sender: FDA-Public Use
  Company Number: IE-BRISTOL-MYERS SQUIBB COMPANY-14109086

PATIENT
  Sex: Female

DRUGS (7)
  1. ENDOXAN [Suspect]
     Indication: BREAST CANCER
     Route: 042
     Dates: start: 20070601, end: 20070724
  2. TAXOTERE [Suspect]
     Indication: BREAST CANCER
     Route: 042
     Dates: start: 20070601, end: 20070724
  3. LUSTRAL [Concomitant]
  4. DELTACORTRIL [Concomitant]
  5. PANTOPRAZOLE SODIUM [Concomitant]
  6. CALCICHEW [Concomitant]
  7. LIPITOR [Concomitant]

REACTIONS (4)
  - ASTHENIA [None]
  - DYSPNOEA [None]
  - FEBRILE NEUTROPENIA [None]
  - MALAISE [None]
